FAERS Safety Report 9254088 (Version 2)
Quarter: 2013Q2

REPORT INFORMATION
  Report Type: Spontaneous
  Country: US (occurrence: US)
  Receive Date: 20130425
  Receipt Date: 20130501
  Transmission Date: 20140414
  Serious: Yes (Other)
  Sender: FDA-Public Use
  Company Number: US-UCBSA-084151

PATIENT
  Age: 59 Year
  Sex: Male

DRUGS (6)
  1. OMEPRAZOLE [Suspect]
     Indication: GASTROOESOPHAGEAL REFLUX DISEASE
     Dates: start: 201009, end: 201108
  2. ATORVASTATIN [Suspect]
     Dates: start: 2006, end: 201108
  3. GEMIFIBROZIL [Suspect]
     Dates: start: 2006, end: 201108
  4. AMLODIPINE [Concomitant]
     Dosage: UNKNOWN
  5. ASPIRIN [Concomitant]
     Dosage: UNKNOWN
  6. METOPROLOL [Concomitant]
     Dosage: UNKNOWN

REACTIONS (1)
  - Polymyositis [Recovered/Resolved]
